FAERS Safety Report 12716434 (Version 1)
Quarter: 2016Q3

REPORT INFORMATION
  Report Type: Other
  Country: CA (occurrence: US)
  Receive Date: 20160906
  Receipt Date: 20160906
  Transmission Date: 20161109
  Serious: No
  Sender: FDA-Public Use
  Company Number: CA-COL_12229_2012

PATIENT
  Age: 68 Year
  Sex: Female

DRUGS (3)
  1. COLGATE TOTAL CLEAN MINT [Suspect]
     Active Substance: SODIUM FLUORIDE\TRICLOSAN
     Indication: DENTAL CARIES
     Dosage: NI/NI/
     Route: 048
     Dates: start: 20120620
  2. COLGATE TOTAL CLEAN MINT [Suspect]
     Active Substance: SODIUM FLUORIDE\TRICLOSAN
     Indication: GINGIVITIS
     Dosage: NI/NI/
     Route: 048
     Dates: start: 20120620
  3. COLGATE TOTAL CLEAN MINT [Suspect]
     Active Substance: SODIUM FLUORIDE\TRICLOSAN
     Indication: DENTAL PLAQUE
     Dosage: NI/NI/
     Route: 048
     Dates: start: 20120620

REACTIONS (1)
  - Stomatitis [Unknown]

NARRATIVE: CASE EVENT DATE: 20120704
